FAERS Safety Report 7772442-8 (Version None)
Quarter: 2011Q3

REPORT INFORMATION
  Report Type: 
  Country: None (occurrence: None)
  Receive Date: 20110921
  Receipt Date: 20110921
  Transmission Date: 20111222
  Serious: Yes (Hospitalization)
  Sender: FDA-Public Use
  Company Number: None

PATIENT
  Weight: 66.6 kg

DRUGS (2)
  1. MELPHALAN HYDROCHLORIDE [Suspect]
     Dosage: 64 MG
     Dates: end: 20110825
  2. DEXAMETHASONE [Suspect]
     Dosage: 160 MG
     Dates: end: 20110825

REACTIONS (10)
  - DYSPNOEA [None]
  - NEUTROPENIC SEPSIS [None]
  - ASTHENIA [None]
  - PLATELET COUNT DECREASED [None]
  - HYPOKALAEMIA [None]
  - HAEMOGLOBIN DECREASED [None]
  - THROMBOCYTOPENIA [None]
  - HAEMATOCRIT DECREASED [None]
  - DIZZINESS [None]
  - DEHYDRATION [None]
